FAERS Safety Report 19601796 (Version 1)
Quarter: 2021Q3

REPORT INFORMATION
  Report Type: Other
  Country: DE (occurrence: DE)
  Receive Date: 20210723
  Receipt Date: 20210723
  Transmission Date: 20211014
  Serious: Yes (Other)
  Sender: FDA-Public Use
  Company Number: DE-MACLEODS PHARMA UK LTD-MAC2021031909

PATIENT

DRUGS (9)
  1. QUETIAPINE. [Interacting]
     Active Substance: QUETIAPINE
     Dosage: 300 MILLIGRAM, QD, FROM HERE START OF THE UAW
     Route: 065
     Dates: start: 20200629, end: 20200917
  2. ATOMOXETINE. [Interacting]
     Active Substance: ATOMOXETINE HYDROCHLORIDE
     Dosage: 65 MILLIGRAM, QD, ATOMOXETINE HYDROCHLORIDE, FROM HERE START OF THE UAW
     Route: 065
     Dates: start: 20200625, end: 20200910
  3. QUETIAPINE. [Interacting]
     Active Substance: QUETIAPINE
     Dosage: 400 MILLIGRAM, QD, FOR THE TIME BEING
     Route: 065
     Dates: start: 20200918
  4. ATOMOXETINE. [Interacting]
     Active Substance: ATOMOXETINE HYDROCHLORIDE
     Dosage: 60 MILLIGRAM, QD, ATOMOXETINE HYDROCHLORIDE
     Route: 065
     Dates: start: 20200624, end: 20200624
  5. NOVALGIN [Concomitant]
     Indication: PRODUCT USED FOR UNKNOWN INDICATION
     Dosage: 4 GRAM, QD
     Route: 065
     Dates: start: 20200619, end: 20200622
  6. QUETIAPINE. [Suspect]
     Active Substance: QUETIAPINE
     Indication: PRODUCT USED FOR UNKNOWN INDICATION
     Dosage: 100 MILLIGRAM, QD
     Route: 065
     Dates: start: 20200622, end: 20200624
  7. ATOMOXETINE. [Interacting]
     Active Substance: ATOMOXETINE HYDROCHLORIDE
     Indication: PRODUCT USED FOR UNKNOWN INDICATION
     Dosage: 40 MILLIGRAM, QD, ATOMOXETINE HYDROCHLORIDE
     Route: 065
     Dates: start: 20200619, end: 20200623
  8. THIAMINE. [Concomitant]
     Active Substance: THIAMINE
     Indication: PRODUCT USED FOR UNKNOWN INDICATION
     Dosage: 100 MILLIGRAM, QD
     Route: 065
     Dates: start: 20200619, end: 20200702
  9. QUETIAPINE. [Interacting]
     Active Substance: QUETIAPINE
     Dosage: 200 MILLIGRAM, QD
     Route: 065
     Dates: start: 20200625, end: 20200628

REACTIONS (8)
  - Ejaculation disorder [Recovering/Resolving]
  - Dermatitis allergic [Recovered/Resolved]
  - Urinary retention [Unknown]
  - Drug interaction [Unknown]
  - Erectile dysfunction [Recovering/Resolving]
  - Pustule [Recovered/Resolved]
  - Pruritus [Recovered/Resolved]
  - Irritability [Recovered/Resolved]

NARRATIVE: CASE EVENT DATE: 20200620
